FAERS Safety Report 19016596 (Version 6)
Quarter: 2021Q3

REPORT INFORMATION
  Report Type: Spontaneous
  Country: US (occurrence: US)
  Receive Date: 20210317
  Receipt Date: 20210825
  Transmission Date: 20211014
  Serious: Yes (Hospitalization)
  Sender: FDA-Public Use
  Company Number: US-GLOBAL BLOOD THERAPEUTICS INC-US-GBT-21-00545

PATIENT
  Age: 13 Year
  Sex: Female

DRUGS (4)
  1. OXBRYTA [Suspect]
     Active Substance: VOXELOTOR
     Indication: SICKLE CELL DISEASE
     Route: 048
     Dates: start: 202009, end: 20210407
  2. FOLIC ACID. [Concomitant]
     Active Substance: FOLIC ACID
     Indication: SICKLE CELL DISEASE
  3. HYDROXYUREA. [Concomitant]
     Active Substance: HYDROXYUREA
     Indication: SICKLE CELL DISEASE
     Dates: end: 20210407
  4. HYDROXYUREA. [Concomitant]
     Active Substance: HYDROXYUREA
     Dates: start: 20210407

REACTIONS (6)
  - Coronavirus infection [Recovered/Resolved]
  - Therapy cessation [Unknown]
  - Sickle cell anaemia with crisis [Not Recovered/Not Resolved]
  - Insurance issue [Unknown]
  - Sickle cell anaemia with crisis [Recovered/Resolved]
  - Therapy non-responder [Unknown]

NARRATIVE: CASE EVENT DATE: 2021
